FAERS Safety Report 21901547 (Version 2)
Quarter: 2023Q1

REPORT INFORMATION
  Report Type: Spontaneous
  Country: DE (occurrence: DE)
  Receive Date: 20230123
  Receipt Date: 20230131
  Transmission Date: 20230417
  Serious: Yes (Life-Threatening)
  Sender: FDA-Public Use
  Company Number: DE-DCGMA-23200227

PATIENT
  Age: 35 Year
  Sex: Female
  Weight: 40 kg

DRUGS (3)
  1. REMICADE [Suspect]
     Active Substance: INFLIXIMAB
     Indication: Crohn^s disease
     Dosage: ALLE 8 WOCHEN
     Route: 042
     Dates: start: 20221114
  2. AZATHIOPRINE [Suspect]
     Active Substance: AZATHIOPRINE
     Indication: Crohn^s disease
     Route: 048
  3. DOMPERIDONE [Concomitant]
     Active Substance: DOMPERIDONE

REACTIONS (3)
  - Sepsis [Unknown]
  - Pancytopenia [Unknown]
  - Pneumonia [Unknown]

NARRATIVE: CASE EVENT DATE: 20230104
